FAERS Safety Report 9491989 (Version 2)
Quarter: 2013Q3

REPORT INFORMATION
  Report Type: Spontaneous
  Country: CM (occurrence: None)
  Receive Date: 20130827
  Receipt Date: 20130925
  Transmission Date: 20140515
  Serious: Yes (Hospitalization)
  Sender: FDA-Public Use
  Company Number: 2013P1018763

PATIENT
  Age: 30 Year
  Sex: Female

DRUGS (5)
  1. ALBENDAZOLE [Suspect]
     Indication: FILARIASIS LYMPHATIC
     Dosage: 1 TABLET
     Dates: start: 20130714
  2. ALBENDAZOLE [Suspect]
     Indication: ONCHOCERCIASIS
     Dosage: 1 TABLET
     Dates: start: 20130714
  3. MECTIZAN (IVERMECTIN) [Suspect]
     Indication: FILARIASIS LYMPHATIC
     Dosage: 3 TABLET
     Dates: start: 20130714
  4. MECTIZAN (IVERMECTIN) [Suspect]
     Indication: ONCHOCERCIASIS
     Dosage: 3 TABLET
     Dates: start: 20130714
  5. DI-HYDAN (PHENYTOIN) [Concomitant]

REACTIONS (3)
  - Toxic epidermal necrolysis [None]
  - Asthenia [None]
  - Decreased appetite [None]
